FAERS Safety Report 6556275-6 (Version None)
Quarter: 2010Q1

REPORT INFORMATION
  Report Type: 
  Country: None (occurrence: None)
  Receive Date: 20100128
  Receipt Date: 20091012
  Transmission Date: 20100710
  Serious: No
  Sender: FDA-Public Use
  Company Number: US-TEVA-210746USA

PATIENT
  Sex: Female
  Weight: 77.634 kg

DRUGS (8)
  1. COPAXONE [Suspect]
     Indication: RELAPSING-REMITTING MULTIPLE SCLEROSIS
     Route: 058
  2. TOLTERODINE TARTRATE [Concomitant]
     Dosage: 2 TABS
     Route: 048
  3. SIMVASTATIN [Concomitant]
     Dosage: AT NIGHT
  4. DULOXETINE HYDROCHLORIDE [Concomitant]
     Route: 048
  5. MODAFINIL [Concomitant]
     Route: 048
  6. CYANOCOBALAMIN [Concomitant]
     Route: 060
  7. LORATADINE [Concomitant]
     Route: 048
  8. NADOLOL [Concomitant]
     Route: 048

REACTIONS (8)
  - ABNORMAL SENSATION IN EYE [None]
  - ASTHENIA [None]
  - BLOOD PRESSURE ABNORMAL [None]
  - CHEST DISCOMFORT [None]
  - DIZZINESS [None]
  - DYSPNOEA [None]
  - ERYTHEMA [None]
  - SWELLING [None]
